FAERS Safety Report 5473311-9 (Version None)
Quarter: 2007Q4

REPORT INFORMATION
  Report Type: 
  Country: None (occurrence: None)
  Receive Date: 20071001
  Receipt Date: 20070921
  Transmission Date: 20080405
  Serious: Yes (Death)
  Sender: FDA-Public Use
  Company Number: US-AMGEN-STX243098

PATIENT
  Sex: Male
  Weight: 103.5 kg

DRUGS (2)
  1. ENBREL [Suspect]
     Indication: PSORIASIS
     Route: 058
     Dates: start: 20051216, end: 20061206
  2. TAGAMET [Concomitant]

REACTIONS (1)
  - DEATH [None]
